FAERS Safety Report 9010512 (Version 2)
Quarter: 2013Q1

REPORT INFORMATION
  Report Type: Spontaneous
  Country: US (occurrence: US)
  Receive Date: 20130111
  Receipt Date: 20130116
  Transmission Date: 20140127
  Serious: Yes (Hospitalization)
  Sender: FDA-Public Use
  Company Number: US-BAXTER-2013BAX000929

PATIENT
  Sex: Female

DRUGS (2)
  1. DIANEAL PD2 [Suspect]
     Indication: PERITONEAL DIALYSIS
     Dosage: 10L
     Route: 033
     Dates: start: 20110818
  2. DIANEAL PD2 [Suspect]
     Indication: PERITONEAL DIALYSIS
     Dosage: 10L
     Route: 033
     Dates: start: 20110818

REACTIONS (3)
  - Renal disorder [Unknown]
  - Haemorrhage [Recovering/Resolving]
  - Platelet count decreased [Recovering/Resolving]
